FAERS Safety Report 12573018 (Version 2)
Quarter: 2017Q3

REPORT INFORMATION
  Report Type: Report from Study
  Country: NZ (occurrence: NZ)
  Receive Date: 20160720
  Receipt Date: 20170803
  Transmission Date: 20171127
  Serious: Yes (Hospitalization)
  Sender: FDA-Public Use
  Company Number: NZ-ROCHE-1738312

PATIENT
  Age: 75 Year
  Sex: Female
  Weight: 57.8 kg

DRUGS (14)
  1. MAGNESIUM PHOSPHATE [Concomitant]
     Active Substance: MAGNESIUM PHOSPHATE, TRIBASIC, PENTAHYDRATE
     Indication: ABDOMINAL PAIN
     Route: 065
     Dates: start: 201310
  2. BACTROBAN [Concomitant]
     Active Substance: MUPIROCIN\MUPIROCIN CALCIUM
     Indication: RASH
     Route: 065
     Dates: start: 201211, end: 201509
  3. THYROXINE [Concomitant]
     Active Substance: LEVOTHYROXINE
     Indication: HYPOTHYROIDISM
  4. PANADOL (NEW ZEALAND) [Concomitant]
     Indication: MUSCULOSKELETAL PAIN
     Route: 065
     Dates: start: 20120508
  5. CHLORAMPHENICOL [Concomitant]
     Active Substance: CHLORAMPHENICOL
     Indication: EPISTAXIS
     Route: 065
     Dates: start: 20150722, end: 201509
  6. OTRIVIN (NEW ZEALAND) [Concomitant]
     Indication: EPISTAXIS
     Route: 065
     Dates: start: 20130328
  7. VOLTAREN [Concomitant]
     Active Substance: DICLOFENAC SODIUM
     Indication: MUSCULOSKELETAL PAIN
     Route: 065
     Dates: start: 201210, end: 201306
  8. DOMPERIDONE [Concomitant]
     Active Substance: DOMPERIDONE
     Indication: PROPHYLAXIS OF NAUSEA AND VOMITING
     Route: 065
     Dates: start: 2011, end: 201201
  9. DOMPERIDONE [Concomitant]
     Active Substance: DOMPERIDONE
     Route: 065
     Dates: start: 20120105
  10. HYDROCORTISONE. [Concomitant]
     Active Substance: HYDROCORTISONE
     Indication: RASH
     Route: 065
     Dates: start: 20141210, end: 201507
  11. TRASTUZUMAB EMTANSINE [Suspect]
     Active Substance: ADO-TRASTUZUMAB EMTANSINE
     Indication: HER-2 POSITIVE BREAST CANCER
     Dosage: DATE OF LAST DOSE: 17/MAR/2016, LAST DOSE TAKEN: 212 MG
     Route: 042
     Dates: start: 20120105
  12. ATORVASTATIN [Concomitant]
     Active Substance: ATORVASTATIN
     Indication: HYPERLIPIDAEMIA
     Route: 065
     Dates: start: 2001, end: 201208
  13. PLACEBO [Suspect]
     Active Substance: UNSPECIFIED INGREDIENT
     Indication: HER-2 POSITIVE BREAST CANCER
     Dosage: ON DAY 1 OF CYCLE 1 AS PER PROTOCOL
     Route: 042
     Dates: start: 20120105
  14. PLACEBO [Suspect]
     Active Substance: UNSPECIFIED INGREDIENT
     Dosage: MAINTENANCE DOSE
     Route: 042
     Dates: start: 20150910

REACTIONS (1)
  - Orthostatic hypotension [Not Recovered/Not Resolved]

NARRATIVE: CASE EVENT DATE: 20160406
